FAERS Safety Report 5051346-8 (Version None)
Quarter: 2006Q3

REPORT INFORMATION
  Report Type: 
  Country: None (occurrence: None)
  Receive Date: 20060714
  Receipt Date: 20060614
  Transmission Date: 20061208
  Serious: Yes (Hospitalization)
  Sender: FDA-Public Use
  Company Number: US-MERCK-0606USA02748

PATIENT
  Age: 50 Year
  Sex: Male
  Weight: 83 kg

DRUGS (5)
  1. VYTORIN [Suspect]
     Indication: BLOOD CHOLESTEROL
     Route: 048
     Dates: start: 20051011, end: 20060601
  2. VYTORIN [Suspect]
     Indication: METABOLIC SYNDROME
     Route: 048
     Dates: start: 20051011, end: 20060601
  3. ASPIRIN [Concomitant]
     Indication: ANTIPLATELET THERAPY
     Route: 048
     Dates: start: 20051011, end: 20060301
  4. ASPIRIN [Concomitant]
     Route: 048
     Dates: start: 20060327
  5. PREDNISONE [Concomitant]
     Route: 065
     Dates: start: 20051011, end: 20051021

REACTIONS (7)
  - ALANINE AMINOTRANSFERASE INCREASED [None]
  - AMNESIA [None]
  - ASPARTATE AMINOTRANSFERASE INCREASED [None]
  - BLOOD CREATINE PHOSPHOKINASE INCREASED [None]
  - BLOOD PHOSPHORUS DECREASED [None]
  - DISORIENTATION [None]
  - DIZZINESS [None]
